FAERS Safety Report 20010601 (Version 1)
Quarter: 2021Q4

REPORT INFORMATION
  Report Type: Spontaneous
  Country: CO (occurrence: CO)
  Receive Date: 20211029
  Receipt Date: 20211029
  Transmission Date: 20220304
  Serious: No
  Sender: FDA-Public Use
  Company Number: CO-PFIZER INC-2020314490

PATIENT
  Age: 11 Year
  Sex: Male
  Weight: 42 kg

DRUGS (1)
  1. GENOTROPIN [Suspect]
     Active Substance: SOMATROPIN
     Indication: Small for dates baby
     Dosage: 0.6 MG, DAILY
     Route: 058
     Dates: start: 20200608

REACTIONS (3)
  - Product dose omission issue [Unknown]
  - Wrong technique in device usage process [Unknown]
  - Device leakage [Unknown]

NARRATIVE: CASE EVENT DATE: 20200806
